FAERS Safety Report 11450504 (Version 1)
Quarter: 2015Q3

REPORT INFORMATION
  Report Type: Spontaneous
  Country: US (occurrence: US)
  Receive Date: 20150903
  Receipt Date: 20150903
  Transmission Date: 20151125
  Serious: No
  Sender: FDA-Public Use
  Company Number: US-ROCHE-1070776

PATIENT
  Age: 51 Year
  Sex: Female

DRUGS (4)
  1. COPEGUS [Suspect]
     Active Substance: RIBAVIRIN
     Indication: HEPATITIS C
     Route: 048
     Dates: start: 20120309, end: 20120417
  2. INCIVEK [Suspect]
     Active Substance: TELAPREVIR
     Indication: HEPATITIS C
     Route: 048
     Dates: start: 20120309, end: 20120417
  3. TRAMADOL. [Concomitant]
     Active Substance: TRAMADOL
  4. PEGASYS [Suspect]
     Active Substance: PEGINTERFERON ALFA-2A
     Indication: HEPATITIS C
     Route: 065
     Dates: start: 20120309, end: 20120417

REACTIONS (2)
  - Fatigue [Unknown]
  - No therapeutic response [Unknown]

NARRATIVE: CASE EVENT DATE: 201203
